FAERS Safety Report 4332804-8 (Version None)
Quarter: 2004Q1

REPORT INFORMATION
  Report Type: 
  Country: None (occurrence: None)
  Receive Date: 20040330
  Receipt Date: 20040315
  Transmission Date: 20041129
  Serious: Yes (Hospitalization)
  Sender: FDA-Public Use
  Company Number: F01200400534

PATIENT
  Age: 50 Year
  Sex: Female

DRUGS (11)
  1. OXALIPLATIN [Suspect]
     Indication: COLORECTAL CANCER
     Dosage: 130 MG/M2 Q3W
     Dates: start: 20040301, end: 20040301
  2. CAPECITABINE [Suspect]
     Dosage: 850 MG/M2, TWICE DAILY FROM D1 TO D15, Q3W, ORAL
     Route: 048
     Dates: start: 20040301, end: 20040310
  3. AVASTIN [Suspect]
     Route: 042
     Dates: start: 20040209, end: 20040209
  4. TOPROL (METOPROLOL SUCCINATE) [Concomitant]
  5. COUMADIN [Concomitant]
  6. ANZEMET (DOLASETRON MESILATE) [Concomitant]
  7. PEPCID [Concomitant]
  8. DECADRON [Concomitant]
  9. SANDOSTATIN [Concomitant]
  10. LEVSIN (HYOSCYAMINE SULFATE) [Concomitant]
  11. QEUSTRAN (COLESTYRAMINE) [Concomitant]

REACTIONS (1)
  - ENTERITIS [None]
